FAERS Safety Report 7051946-X (Version None)
Quarter: 2010Q4

REPORT INFORMATION
  Report Type: 
  Country: None (occurrence: None)
  Receive Date: 20101019
  Receipt Date: 20101013
  Transmission Date: 20110411
  Serious: Yes (Death, Life-Threatening, Hospitalization, Disabling)
  Sender: FDA-Public Use
  Company Number: JP-MERCK-1009USA00618

PATIENT
  Age: 84 Year
  Sex: Male
  Weight: 67 kg

DRUGS (16)
  1. JANUVIA [Suspect]
     Indication: GLYCOSYLATED HAEMOGLOBIN INCREASED
     Route: 048
     Dates: start: 20100714, end: 20100716
  2. AMARYL [Suspect]
     Route: 048
     Dates: start: 20100714, end: 20100716
  3. AMARYL [Suspect]
     Route: 048
     Dates: start: 20080604, end: 20100713
  4. OLMETEC [Concomitant]
     Route: 048
     Dates: start: 20080601, end: 20100716
  5. AZELASTINE HCL [Concomitant]
     Route: 048
     Dates: start: 20091201, end: 20100716
  6. WARFARIN POTASSIUM [Concomitant]
     Route: 048
     Dates: start: 20070101, end: 20100717
  7. PEPCID RPD [Concomitant]
     Route: 048
     Dates: start: 20070701, end: 20100716
  8. DIART [Concomitant]
     Route: 048
     Dates: start: 20070101, end: 20100716
  9. SALOBEL [Concomitant]
     Route: 048
     Dates: start: 20080601, end: 20100716
  10. MAGNESIUM OXIDE [Concomitant]
     Route: 048
     Dates: start: 20070401, end: 20100716
  11. LENDORMIN [Concomitant]
     Route: 048
  12. TAMSULOSIN HCL [Concomitant]
     Route: 048
  13. VESICARE [Concomitant]
     Route: 048
  14. CASODEX [Concomitant]
     Route: 048
  15. NEUROTROPIN [Concomitant]
     Route: 065
  16. FOSAMAX [Concomitant]
     Route: 048

REACTIONS (3)
  - GASTROINTESTINAL HAEMORRHAGE [None]
  - HYPOGLYCAEMIC COMA [None]
  - PNEUMONIA ASPIRATION [None]
